FAERS Safety Report 17953148 (Version 3)
Quarter: 2022Q1

REPORT INFORMATION
  Report Type: Spontaneous
  Country: FR (occurrence: FR)
  Receive Date: 20200627
  Receipt Date: 20220217
  Transmission Date: 20220423
  Serious: Yes (Other)
  Sender: FDA-Public Use
  Company Number: None

PATIENT
  Age: 20 Year
  Sex: Male

DRUGS (1)
  1. DOXYCYCLINE [Suspect]
     Active Substance: DOXYCYCLINE
     Indication: Malaria prophylaxis
     Dosage: 100 MG, QD (1/DAY)
     Route: 065
     Dates: start: 2017, end: 2017

REACTIONS (6)
  - Pollakiuria [Recovered/Resolved]
  - Nocturia [Recovered/Resolved]
  - Malaise [Recovered/Resolved]
  - Pelvic pain [Recovered/Resolved]
  - Micturition urgency [Recovered/Resolved]
  - Dysuria [Recovered/Resolved]

NARRATIVE: CASE EVENT DATE: 20170101
